FAERS Safety Report 19523918 (Version 2)
Quarter: 2021Q3

REPORT INFORMATION
  Report Type: Spontaneous
  Country: CN (occurrence: CN)
  Receive Date: 20210713
  Receipt Date: 20210719
  Transmission Date: 20211014
  Serious: Yes (Hospitalization, Disabling, Other)
  Sender: FDA-Public Use
  Company Number: CN-009507513-2107CHN002206

PATIENT
  Age: 34 Year
  Sex: Female

DRUGS (7)
  1. VFEND [Suspect]
     Active Substance: VORICONAZOLE
     Indication: INFECTION
     Dosage: 0.2 GRAM, EVERY 12 HOURS (Q12H) (ALSO REPORTED AS BID)
     Route: 041
     Dates: start: 20210628, end: 20210630
  2. SODIUM CHLORIDE. [Concomitant]
     Active Substance: SODIUM CHLORIDE
     Indication: MEDICATION DILUTION
     Dosage: 100 MILLILITER, EVERY 12 HOURS (Q12H) (ALSO REPORTED AS BID)
     Route: 041
     Dates: start: 20210628, end: 20210630
  3. TIENAM [Suspect]
     Active Substance: CILASTATIN SODIUM\IMIPENEM
     Indication: INFECTION
     Dosage: 1 GRAM, QID
     Route: 041
     Dates: start: 20210629, end: 20210630
  4. TIGECYCLINE. [Suspect]
     Active Substance: TIGECYCLINE
     Indication: INFECTION
     Dosage: 100 MILLIGRAM, Q12H (ALSO REPORTED AS BID)
     Route: 041
     Dates: start: 20210626, end: 20210630
  5. SODIUM CHLORIDE. [Concomitant]
     Active Substance: SODIUM CHLORIDE
     Dosage: 100 MILLILITER, QID
     Route: 041
     Dates: start: 20210629, end: 20210630
  6. SODIUM CHLORIDE. [Concomitant]
     Active Substance: SODIUM CHLORIDE
     Dosage: 100 MILLILITER, Q12H (ALSO REPORTED AS BID)
     Route: 041
     Dates: start: 20210626, end: 20210630
  7. COMPOUND SULFAMETHOXAZOLE [Suspect]
     Active Substance: SULFAMETHOXAZOLE
     Indication: INFECTION
     Dosage: 0.96 GRAM, BID
     Route: 048
     Dates: start: 20210629, end: 20210630

REACTIONS (2)
  - Acute myeloid leukaemia [Unknown]
  - Acute hepatic failure [Recovering/Resolving]

NARRATIVE: CASE EVENT DATE: 2021
